FAERS Safety Report 5892990-5 (Version None)
Quarter: 2008Q3

REPORT INFORMATION
  Report Type: 
  Country: None (occurrence: None)
  Receive Date: 20080923
  Receipt Date: 20070618
  Transmission Date: 20090109
  Serious: No
  Sender: FDA-Public Use
  Company Number: US-ASTRAZENECA-2007UW14587

PATIENT
  Age: 55 Year
  Sex: Female

DRUGS (4)
  1. SEROQUEL [Suspect]
     Route: 048
  2. AMBIEN CR [Concomitant]
  3. XANAX XR [Concomitant]
  4. EFFEXOR XR [Concomitant]

REACTIONS (2)
  - AGITATION [None]
  - INTENTIONAL DRUG MISUSE [None]
